FAERS Safety Report 10013730 (Version 4)
Quarter: 2014Q3

REPORT INFORMATION
  Report Type: Spontaneous
  Country: US (occurrence: US)
  Receive Date: 20140316
  Receipt Date: 20140910
  Transmission Date: 20150326
  Serious: Yes (Hospitalization)
  Sender: FDA-Public Use
  Company Number: US-BAYER-2014-037266

PATIENT
  Age: 27 Year
  Sex: Female
  Weight: 77.98 kg

DRUGS (8)
  1. PIROXICAM. [Concomitant]
     Active Substance: PIROXICAM
     Indication: HEADACHE
     Dosage: 20 MG, UNK
  2. DOXYCYCLINE. [Concomitant]
     Active Substance: DOXYCYCLINE
  3. IBUPROFEN. [Concomitant]
     Active Substance: IBUPROFEN
     Dosage: 800 MG, PRN
  4. DEPO-PROVERA [Concomitant]
     Active Substance: MEDROXYPROGESTERONE ACETATE
  5. FLAGYL [Concomitant]
     Active Substance: METRONIDAZOLE\METRONIDAZOLE HYDROCHLORIDE
  6. TOPROL XL [Concomitant]
     Active Substance: METOPROLOL SUCCINATE
     Indication: HEADACHE
     Dosage: 25 MG, UNK
  7. MIRENA [Suspect]
     Active Substance: LEVONORGESTREL
     Indication: CONTRACEPTION
     Dosage: 20 MCG/24HR, CONT
     Route: 015
     Dates: start: 20051121, end: 20051128
  8. MORPHINE [Concomitant]
     Active Substance: MORPHINE
     Indication: PAIN

REACTIONS (12)
  - Dysmenorrhoea [None]
  - Emotional distress [None]
  - Menorrhagia [None]
  - Menstruation irregular [None]
  - Neuralgia [None]
  - Device dislocation [None]
  - Uterine perforation [None]
  - Injury [None]
  - Pain [None]
  - Depression [None]
  - Anxiety [None]
  - Nerve injury [None]

NARRATIVE: CASE EVENT DATE: 200511
